FAERS Safety Report 4332439-7 (Version None)
Quarter: 2004Q2

REPORT INFORMATION
  Report Type: 
  Country: None (occurrence: None)
  Receive Date: 20040401
  Receipt Date: 20040315
  Transmission Date: 20050107
  Serious: No
  Sender: FDA-Public Use
  Company Number: 7668

PATIENT
  Age: 14 Year
  Sex: Male

DRUGS (4)
  1. METHOTREXATE [Suspect]
     Indication: BONE SARCOMA
     Dosage: G/M2 WEEKLY
     Route: 042
  2. IFOSFAMIDE [Concomitant]
  3. ETOPOSIDE [Concomitant]
  4. LEUCOVORIN CALCIUM [Concomitant]

REACTIONS (6)
  - BONE MARROW DEPRESSION [None]
  - CARDIAC FAILURE [None]
  - CYTOLYTIC HEPATITIS [None]
  - DRUG TOXICITY [None]
  - MUCOSAL INFLAMMATION [None]
  - RENAL FAILURE ACUTE [None]
